FAERS Safety Report 17185117 (Version 2)
Quarter: 2020Q2

REPORT INFORMATION
  Report Type: Spontaneous
  Country: JP (occurrence: JP)
  Receive Date: 20191220
  Receipt Date: 20200403
  Transmission Date: 20200713
  Serious: No
  Sender: FDA-Public Use
  Company Number: JP-OTSUKA-2019_042093

PATIENT
  Age: 46 Year
  Sex: Male

DRUGS (5)
  1. SAMSCA [Suspect]
     Active Substance: TOLVAPTAN
     Indication: CONGENITAL CYSTIC KIDNEY DISEASE
     Dosage: 120MG/DAY, FREQUENCY UNKNOWN
     Route: 048
     Dates: start: 20190421, end: 20190921
  2. SAMSCA [Suspect]
     Active Substance: TOLVAPTAN
     Dosage: 90MG/DAY, FREQUENCY UNKNOWN
     Route: 048
     Dates: start: 20190324, end: 20190420
  3. SAMSCA [Suspect]
     Active Substance: TOLVAPTAN
     Dosage: 60MG/DAY, FREQUENCY UNKNOWN
     Route: 048
     Dates: start: 20190309, end: 20190323
  4. SAMSCA [Suspect]
     Active Substance: TOLVAPTAN
     Dosage: 30MG/DAY, FREQUENCY UNKNOWN
     Route: 048
     Dates: start: 20200215, end: 20200314
  5. PREMINENT [Concomitant]
     Active Substance: HYDROCHLOROTHIAZIDE\LOSARTAN POTASSIUM
     Indication: PRODUCT USED FOR UNKNOWN INDICATION
     Dosage: 1 TABLET/DAY, QD
     Route: 048
     Dates: start: 20170422

REACTIONS (2)
  - Hepatic function abnormal [Unknown]
  - Hepatic function abnormal [Recovered/Resolved]

NARRATIVE: CASE EVENT DATE: 20190622
